FAERS Safety Report 24142903 (Version 1)
Quarter: 2024Q3

REPORT INFORMATION
  Report Type: Spontaneous
  Country: CA (occurrence: CA)
  Receive Date: 20240726
  Receipt Date: 20240726
  Transmission Date: 20241016
  Serious: Yes (Other)
  Sender: SANDOZ
  Company Number: CA-SANDOZ-SDZ2024CA068084

PATIENT
  Age: 12 Year
  Sex: Female

DRUGS (3)
  1. SOMATROPIN [Suspect]
     Active Substance: SOMATROPIN
     Indication: Growth hormone deficiency
     Dosage: 700 MG
     Route: 058
  2. LAMOTRIGINE [Concomitant]
     Active Substance: LAMOTRIGINE
     Indication: Product used for unknown indication
     Dosage: UNK UNK, QD
     Route: 065
  3. VALPROIC ACID [Concomitant]
     Active Substance: VALPROIC ACID
     Indication: Product used for unknown indication
     Dosage: 375 MG
     Route: 065

REACTIONS (1)
  - Neoplasm malignant [Recovered/Resolved]
